FAERS Safety Report 18866277 (Version 1)
Quarter: 2021Q1

REPORT INFORMATION
  Report Type: Spontaneous
  Country: IR (occurrence: IR)
  Receive Date: 20210209
  Receipt Date: 20210209
  Transmission Date: 20210420
  Serious: Yes (Other)
  Sender: FDA-Public Use
  Company Number: IR-BYBET-IR-2021-YPL-00007

PATIENT

DRUGS (4)
  1. LETROZOLE. [Suspect]
     Active Substance: LETROZOLE
     Indication: BREAST CANCER
  2. PREDNISOLONE. [Interacting]
     Active Substance: PREDNISOLONE
     Indication: HYPERSENSITIVITY VASCULITIS
  3. COLCHICINE. [Interacting]
     Active Substance: COLCHICINE
     Indication: HYPERSENSITIVITY VASCULITIS
  4. CLOBETASOL [Interacting]
     Active Substance: CLOBETASOL
     Indication: HYPERSENSITIVITY VASCULITIS

REACTIONS (1)
  - Hypersensitivity vasculitis [Recovering/Resolving]
